FAERS Safety Report 9116151 (Version 2)
Quarter: 2013Q2

REPORT INFORMATION
  Report Type: Spontaneous
  Country: US (occurrence: US)
  Receive Date: 20130225
  Receipt Date: 20130501
  Transmission Date: 20140414
  Serious: Yes (Hospitalization)
  Sender: FDA-Public Use
  Company Number: US-B.I. PHARMACEUTICALS,INC./RIDGEFIELD-2013-BI-04089BP

PATIENT
  Age: 73 Year
  Sex: Male
  Weight: 83.91 kg

DRUGS (10)
  1. SPIRIVA [Suspect]
     Indication: CHRONIC OBSTRUCTIVE PULMONARY DISEASE
     Dosage: 18 MCG
     Route: 055
     Dates: start: 20111108
  2. CARDIZEM [Concomitant]
     Indication: ATRIAL FIBRILLATION
     Route: 048
  3. VITAMIN D [Concomitant]
     Route: 048
  4. LOPRESSOR [Concomitant]
     Route: 048
  5. OMEPRAZOLE [Concomitant]
     Route: 048
  6. SIMVASTATIN [Concomitant]
     Indication: BLOOD CHOLESTEROL INCREASED
     Dosage: 40 MG
     Route: 048
     Dates: start: 200906
  7. SIMVASTATIN [Concomitant]
     Indication: HYPERLIPIDAEMIA
  8. BUDESOMIDE [Concomitant]
     Route: 055
  9. DUONEB [Concomitant]
     Route: 055
  10. PERCODAN [Concomitant]
     Indication: PAIN

REACTIONS (3)
  - Dyspnoea [Recovered/Resolved]
  - Chronic obstructive pulmonary disease [Recovered/Resolved]
  - Atrial fibrillation [Recovered/Resolved]
